FAERS Safety Report 5077699-2 (Version None)
Quarter: 2006Q3

REPORT INFORMATION
  Report Type: 
  Country: None (occurrence: None)
  Receive Date: 20060807
  Receipt Date: 20060725
  Transmission Date: 20061208
  Serious: Yes (Other)
  Sender: FDA-Public Use
  Company Number: MC200600419

PATIENT
  Age: 86 Year
  Sex: Female
  Weight: 67 kg

DRUGS (4)
  1. ANGIOMAX [Suspect]
     Indication: PERCUTANEOUS CORONARY INTERVENTION
     Dosage: SEE IMAGE
     Route: 040
     Dates: start: 20060519, end: 20060519
  2. PLAVIX [Concomitant]
  3. CARDIO ASPIRINA         (ACETYLSALICYLIC ACID) [Concomitant]
  4. LIPITOR [Concomitant]

REACTIONS (2)
  - POST PROCEDURAL COMPLICATION [None]
  - VASCULAR PSEUDOANEURYSM [None]
